FAERS Safety Report 15348737 (Version 5)
Quarter: 2020Q2

REPORT INFORMATION
  Report Type: Report from Study
  Country: None (occurrence: CA)
  Receive Date: 20180904
  Receipt Date: 20200521
  Transmission Date: 20200713
  Serious: Yes (Hospitalization, Other)
  Sender: FDA-Public Use
  Company Number: CA-ABBVIE-18K-028-2472742-00

PATIENT
  Age: 30 Year
  Sex: Female

DRUGS (3)
  1. HUMIRA [Suspect]
     Active Substance: ADALIMUMAB
     Dosage: DOSE INCREASED
     Route: 058
     Dates: start: 20180919
  2. HUMIRA [Suspect]
     Active Substance: ADALIMUMAB
     Indication: CROHN^S DISEASE
     Route: 058
     Dates: start: 20150225, end: 201808
  3. OLESTYR [Suspect]
     Active Substance: CHOLESTYRAMINE
     Indication: DIARRHOEA
     Route: 048
     Dates: start: 2019, end: 2019

REACTIONS (7)
  - Post procedural diarrhoea [Not Recovered/Not Resolved]
  - Pain [Recovering/Resolving]
  - Abdominal distension [Not Recovered/Not Resolved]
  - Intestinal obstruction [Unknown]
  - Flatulence [Not Recovered/Not Resolved]
  - Cholecystectomy [Unknown]
  - Vomiting [Unknown]

NARRATIVE: CASE EVENT DATE: 2016
